FAERS Safety Report 7137930-6 (Version None)
Quarter: 2010Q4

REPORT INFORMATION
  Report Type: 
  Country: None (occurrence: None)
  Receive Date: 20101103
  Receipt Date: 20100827
  Transmission Date: 20110411
  Serious: Yes (Other)
  Sender: FDA-Public Use
  Company Number: 2010S1001349

PATIENT
  Age: 72 Year
  Sex: Male

DRUGS (5)
  1. CUBICIN [Suspect]
     Indication: ENDOCARDITIS
     Dosage: 4 MG/KG; Q24H; IV
     Route: 042
     Dates: start: 20091217, end: 20100105
  2. CUBICIN [Suspect]
     Indication: STAPHYLOCOCCAL INFECTION
     Dosage: 4 MG/KG; Q24H; IV
     Route: 042
     Dates: start: 20091217, end: 20100105
  3. INSULIN [Concomitant]
  4. OMEPRAZOLE [Concomitant]
  5. CLEXANE [Concomitant]

REACTIONS (1)
  - EOSINOPHILIC PNEUMONIA [None]
